FAERS Safety Report 12387543 (Version 1)
Quarter: 2016Q2

REPORT INFORMATION
  Report Type: Spontaneous
  Country: DK (occurrence: DK)
  Receive Date: 20160520
  Receipt Date: 20160520
  Transmission Date: 20160815
  Serious: Yes (Life-Threatening, Hospitalization, Disabling)
  Sender: FDA-Public Use
  Company Number: DK-TEVA-659541ACC

PATIENT
  Age: 81 Year
  Sex: Male
  Weight: 90 kg

DRUGS (1)
  1. PROSTAZOSIN [Suspect]
     Active Substance: ALFUZOSIN
     Indication: PROSTATE CANCER
     Dosage: 7.5 MILLIGRAM DAILY; STRENGTH: 2.5 MG; DAILY DOSE: 7.5MILLIGRAM
     Route: 048
     Dates: start: 20160127, end: 20160428

REACTIONS (3)
  - Cardiac arrest [Recovered/Resolved]
  - Cardiac massage [Recovered/Resolved with Sequelae]
  - Ventricular fibrillation [Unknown]

NARRATIVE: CASE EVENT DATE: 20160428
